FAERS Safety Report 18959136 (Version 2)
Quarter: 2021Q2

REPORT INFORMATION
  Report Type: Spontaneous
  Country: JP (occurrence: JP)
  Receive Date: 20210302
  Receipt Date: 20210507
  Transmission Date: 20210717
  Serious: Yes (Hospitalization)
  Sender: FDA-Public Use
  Company Number: JP-ELI_LILLY_AND_COMPANY-JP202102011409

PATIENT
  Age: 48 Year
  Sex: Female
  Weight: 50 kg

DRUGS (12)
  1. MANNITOL. [Concomitant]
     Active Substance: MANNITOL
     Indication: SQUAMOUS CELL CARCINOMA OF LUNG
     Dosage: UNK
     Dates: start: 20210210
  2. APREPITANT. [Concomitant]
     Active Substance: APREPITANT
     Indication: ANTIEMETIC SUPPORTIVE CARE
  3. GRANISETRON [Concomitant]
     Active Substance: GRANISETRON
     Indication: SQUAMOUS CELL CARCINOMA OF LUNG
  4. NECITUMUMAB [Suspect]
     Active Substance: NECITUMUMAB
     Indication: SQUAMOUS CELL CARCINOMA OF LUNG
     Dosage: 800 MG, UNKNOWN
     Route: 041
     Dates: start: 20210210, end: 20210217
  5. CISPLATIN. [Suspect]
     Active Substance: CISPLATIN
     Indication: SQUAMOUS CELL CARCINOMA OF LUNG
     Dosage: 100 MG, UNKNOWN
     Route: 041
     Dates: start: 20210210
  6. OLANZAPINE. [Suspect]
     Active Substance: OLANZAPINE
     Indication: ANTIEMETIC SUPPORTIVE CARE
     Dosage: 2.5 MG, UNKNOWN
     Route: 048
     Dates: start: 20210210, end: 20210212
  7. GRANISETRON [Concomitant]
     Active Substance: GRANISETRON
     Indication: ANTIEMETIC SUPPORTIVE CARE
  8. POTASSIUM ASPARTATE AND MAGNESIUM ASPARTATE [Concomitant]
     Indication: SQUAMOUS CELL CARCINOMA OF LUNG
     Dosage: UNK
     Dates: start: 20210210
  9. APREPITANT. [Concomitant]
     Active Substance: APREPITANT
     Indication: SQUAMOUS CELL CARCINOMA OF LUNG
  10. DEXAMETHASONE. [Suspect]
     Active Substance: DEXAMETHASONE
     Indication: PRODUCT USED FOR UNKNOWN INDICATION
     Route: 065
  11. GEMCITABINE HYDROCHLORIDE. [Suspect]
     Active Substance: GEMCITABINE HYDROCHLORIDE
     Indication: SQUAMOUS CELL CARCINOMA OF LUNG
     Dosage: 1800 MG, UNKNOWN
     Route: 041
     Dates: start: 20210210, end: 20210217
  12. ALOXI [Suspect]
     Active Substance: PALONOSETRON HYDROCHLORIDE
     Indication: PRODUCT USED FOR UNKNOWN INDICATION
     Route: 065

REACTIONS (1)
  - Hepatic function abnormal [Recovered/Resolved]

NARRATIVE: CASE EVENT DATE: 20210212
